FAERS Safety Report 20556295 (Version 2)
Quarter: 2022Q2

REPORT INFORMATION
  Report Type: Spontaneous
  Country: US (occurrence: None)
  Receive Date: 20220305
  Receipt Date: 20220413
  Transmission Date: 20220721
  Serious: No
  Sender: FDA-Public Use
  Company Number: 2022A074420

PATIENT
  Age: 60 Year
  Sex: Female
  Weight: 68 kg

DRUGS (14)
  1. CALQUENCE [Suspect]
     Active Substance: ACALABRUTINIB
     Indication: Non-Hodgkin^s lymphoma
     Route: 048
     Dates: start: 2020
  2. CARVEDILOL [Concomitant]
     Active Substance: CARVEDILOL
     Route: 048
  3. HYDRALAZINE [Concomitant]
     Active Substance: HYDRALAZINE HYDROCHLORIDE
     Route: 065
  4. SPIRONOLACTONE [Concomitant]
     Active Substance: SPIRONOLACTONE
     Route: 065
  5. CYPROHEPTADINE [Concomitant]
     Active Substance: CYPROHEPTADINE
     Route: 065
  6. LOVASTATIN [Concomitant]
     Active Substance: LOVASTATIN
     Route: 065
  7. LOSARTAN [Concomitant]
     Active Substance: LOSARTAN
     Route: 065
  8. DOXAZOSIN [Concomitant]
     Active Substance: DOXAZOSIN MESYLATE
     Route: 065
  9. CYRPOHEPTOD [Concomitant]
     Route: 065
  10. CYCLOBENZAPRINE [Concomitant]
     Active Substance: CYCLOBENZAPRINE
     Indication: Muscle spasms
     Route: 065
  11. NITROGLYCERIN [Concomitant]
     Active Substance: NITROGLYCERIN
     Dosage: WHEN NECESSARY
     Route: 065
  12. CLONIDINE [Concomitant]
     Active Substance: CLONIDINE
     Dosage: PATCH REPLACED EVERY WEEK
     Route: 065
  13. AMOXIC-POTPLAZ [Concomitant]
     Route: 065
  14. BIOTIN [Concomitant]
     Active Substance: BIOTIN
     Route: 065

REACTIONS (16)
  - Chromaturia [Recovered/Resolved]
  - Dehydration [Not Recovered/Not Resolved]
  - Skin exfoliation [Not Recovered/Not Resolved]
  - Nail discolouration [Recovered/Resolved]
  - Ingrowing nail [Not Recovered/Not Resolved]
  - Tooth loss [Not Recovered/Not Resolved]
  - Bruxism [Not Recovered/Not Resolved]
  - COVID-19 [Recovered/Resolved]
  - Pneumonia [Recovered/Resolved]
  - Decreased appetite [Not Recovered/Not Resolved]
  - Fatigue [Not Recovered/Not Resolved]
  - Menstrual disorder [Not Recovered/Not Resolved]
  - Weight decreased [Not Recovered/Not Resolved]
  - Feeding disorder [Not Recovered/Not Resolved]
  - Infusion site haemorrhage [Recovered/Resolved]
  - Trichorrhexis [Unknown]

NARRATIVE: CASE EVENT DATE: 20210101
